FAERS Safety Report 11809720 (Version 1)
Quarter: 2015Q4

REPORT INFORMATION
  Report Type: Spontaneous
  Country: US (occurrence: US)
  Receive Date: 20151208
  Receipt Date: 20151208
  Transmission Date: 20160305
  Serious: Yes (Other)
  Sender: FDA-Public Use
  Company Number: US-JNJCP-30000314998

PATIENT
  Sex: Female
  Weight: 4 kg

DRUGS (3)
  1. AVEENO BABY WASH + SHAMPOO [Suspect]
     Active Substance: COSMETICS
     Indication: REMOVAL OF INERT MATTER FROM SKIN OR SUBCUTANEOUS TISSUE
     Dosage: TWO PUMPS, ONCE EVERY OTHER DAY
     Route: 061
     Dates: start: 20151114, end: 20151118
  2. AVEENO BABY DAILY MOISTURE [Suspect]
     Active Substance: DIMETHICONE
     Indication: DRY SKIN PROPHYLAXIS
     Dosage: ONCE EVERYOTHER DAY
     Route: 061
     Dates: start: 20151114, end: 20151118
  3. AVEENO SOOTHING BATH TREATMENT [Suspect]
     Active Substance: OATMEAL
     Dosage: ONE PACKET, ONCE EVERYOTHER DAY
     Route: 061
     Dates: start: 20151114, end: 20151118

REACTIONS (3)
  - Application site dryness [Not Recovered/Not Resolved]
  - Application site rash [Not Recovered/Not Resolved]
  - Application site vesicles [Not Recovered/Not Resolved]

NARRATIVE: CASE EVENT DATE: 20151118
